FAERS Safety Report 17568702 (Version 1)
Quarter: 2020Q1

REPORT INFORMATION
  Report Type: Report from Study
  Country: None (occurrence: CO)
  Receive Date: 20200321
  Receipt Date: 20200321
  Transmission Date: 20200409
  Serious: Yes (Other)
  Sender: FDA-Public Use
  Company Number: CO-ABBVIE-20K-036-3331160-00

PATIENT
  Sex: Female
  Weight: 63 kg

DRUGS (1)
  1. HUMIRA [Suspect]
     Active Substance: ADALIMUMAB
     Indication: RHEUMATOID ARTHRITIS
     Route: 058
     Dates: start: 20160831, end: 20200305

REACTIONS (3)
  - Toothache [Recovering/Resolving]
  - Tooth infection [Recovering/Resolving]
  - Tooth injury [Unknown]

NARRATIVE: CASE EVENT DATE: 2019
